FAERS Safety Report 25974389 (Version 1)
Quarter: 2025Q4

REPORT INFORMATION
  Report Type: Spontaneous
  Country: US (occurrence: None)
  Receive Date: 20251029
  Receipt Date: 20251029
  Transmission Date: 20260118
  Serious: Yes (Death, Hospitalization)
  Sender: FDA-CTU
  Company Number: None

PATIENT
  Age: 81 Year
  Sex: Male
  Weight: 76.3 kg

DRUGS (6)
  1. DARATUMUMAB\HYALURONIDASE-FIHJ [Suspect]
     Active Substance: DARATUMUMAB\HYALURONIDASE-FIHJ
     Dates: end: 20250828
  2. DEXAMETHASONE [Suspect]
     Active Substance: DEXAMETHASONE
     Dates: end: 20250828
  3. LENALIDOMIDE [Suspect]
     Active Substance: LENALIDOMIDE
     Dates: end: 20250902
  4. BORTEZOMIB [Suspect]
     Active Substance: BORTEZOMIB
  5. METHOTREXATE [Suspect]
     Active Substance: METHOTREXATE
  6. NAPROXEN [Suspect]
     Active Substance: NAPROXEN

REACTIONS (9)
  - Cough [None]
  - Dyspnoea [None]
  - Muscular weakness [None]
  - Hypoxia [None]
  - Pulmonary embolism [None]
  - Pneumocystis jirovecii pneumonia [None]
  - Treatment failure [None]
  - Radiation injury [None]
  - Immunosuppression [None]

NARRATIVE: CASE EVENT DATE: 20250907
